FAERS Safety Report 20475544 (Version 1)
Quarter: 2022Q1

REPORT INFORMATION
  Report Type: Spontaneous
  Country: US (occurrence: None)
  Receive Date: 20220215
  Receipt Date: 20220215
  Transmission Date: 20220423
  Serious: No
  Sender: FDA-Public Use
  Company Number: None

PATIENT
  Age: 7 Year
  Sex: Male

DRUGS (1)
  1. NORDITROPIN [Suspect]
     Active Substance: SOMATROPIN
     Dosage: OTHER QUANTITY : 0.5;?FREQUENCY : DAILY;?
     Route: 058
     Dates: start: 202101

REACTIONS (5)
  - Enuresis [None]
  - Lid sulcus deepened [None]
  - Fatigue [None]
  - Body temperature abnormal [None]
  - Balance disorder [None]

NARRATIVE: CASE EVENT DATE: 20220114
